FAERS Safety Report 8443041-X (Version None)
Quarter: 2012Q2

REPORT INFORMATION
  Report Type: 
  Country: None (occurrence: None)
  Receive Date: 20120615
  Receipt Date: 20120613
  Transmission Date: 20120825
  Serious: Yes (Death, Other)
  Sender: FDA-Public Use
  Company Number: PHHY2012JP051175

PATIENT
  Age: 49 Year
  Sex: Female

DRUGS (4)
  1. CYTARABINE [Suspect]
     Indication: METASTASES TO MENINGES
     Dosage: 40 MG, UNK
     Route: 037
  2. PREDNISOLONE [Suspect]
     Indication: METASTASES TO MENINGES
     Dosage: 20 MG, UNK
     Route: 037
  3. DOXORUBICIN HCL [Suspect]
     Indication: METASTASES TO MENINGES
     Dosage: 40 MG/M2, UNK
  4. METHOTREXATE [Suspect]
     Indication: METASTASES TO MENINGES
     Dosage: 15 MG, UNK
     Route: 037

REACTIONS (15)
  - PARALYSIS [None]
  - DYSPHONIA [None]
  - HEARING IMPAIRED [None]
  - LOSS OF CONSCIOUSNESS [None]
  - VOCAL CORD PARALYSIS [None]
  - PANCYTOPENIA [None]
  - GAIT DISTURBANCE [None]
  - METASTASES TO LIVER [None]
  - DISEASE PROGRESSION [None]
  - VITH NERVE PARALYSIS [None]
  - NEUROLOGICAL SYMPTOM [None]
  - METASTASES TO CENTRAL NERVOUS SYSTEM [None]
  - VISUAL ACUITY REDUCED [None]
  - METASTASES TO LYMPH NODES [None]
  - DYSPHAGIA [None]
